FAERS Safety Report 17965418 (Version 3)
Quarter: 2021Q2

REPORT INFORMATION
  Report Type: Report from Study
  Country: CA (occurrence: CA)
  Receive Date: 20200630
  Receipt Date: 20210414
  Transmission Date: 20210717
  Serious: Yes (Disabling, Other)
  Sender: FDA-Public Use
  Company Number: CA-HLS-202000523

PATIENT
  Age: 39 Year
  Sex: Female

DRUGS (4)
  1. IPRATROPIUM [Concomitant]
     Active Substance: IPRATROPIUM
     Indication: SALIVARY HYPERSECRETION
     Dosage: STOP: SPRING 2020?(0.03%) SPRAY
     Route: 060
     Dates: start: 201912, end: 2020
  2. CLOZARIL [Suspect]
     Active Substance: CLOZAPINE
     Indication: PSYCHOTIC DISORDER
     Route: 065
  3. CLOZARIL [Suspect]
     Active Substance: CLOZAPINE
     Indication: PSYCHOTIC DISORDER
     Route: 048
     Dates: start: 20190802
  4. CLOZARIL [Suspect]
     Active Substance: CLOZAPINE
     Indication: PSYCHOTIC DISORDER
     Route: 065

REACTIONS (10)
  - Blood triglycerides increased [Unknown]
  - Tooth abscess [Unknown]
  - Parotitis [Recovering/Resolving]
  - Salivary hypersecretion [Recovering/Resolving]
  - Dizziness [Not Recovered/Not Resolved]
  - White blood cell count increased [Unknown]
  - Electrocardiogram QT prolonged [Unknown]
  - Upper respiratory tract infection [Unknown]
  - Heart rate increased [Unknown]
  - Neutrophilia [Unknown]
